FAERS Safety Report 12337798 (Version 2)
Quarter: 2020Q2

REPORT INFORMATION
  Report Type: Spontaneous
  Country: US (occurrence: US)
  Receive Date: 20160505
  Receipt Date: 20200601
  Transmission Date: 20200713
  Serious: Yes (Death, Hospitalization, Other)
  Sender: FDA-Public Use
  Company Number: US-009507513-1605USA002226

PATIENT
  Sex: Female
  Weight: 42.63 kg

DRUGS (1)
  1. JANUVIA [Suspect]
     Active Substance: SITAGLIPTIN PHOSPHATE
     Indication: TYPE 2 DIABETES MELLITUS
     Dosage: 100 MILLIGRAM, QD
     Route: 048
     Dates: start: 20111101, end: 201209

REACTIONS (11)
  - Pancreatic carcinoma [Unknown]
  - Fatigue [Unknown]
  - Malaise [Unknown]
  - Nausea [Unknown]
  - Incorrect dosage administered [Unknown]
  - Death [Fatal]
  - Gastritis [Unknown]
  - Embolism [Unknown]
  - Hepatic cancer metastatic [Unknown]
  - Feeding disorder [Unknown]
  - Constipation [Unknown]

NARRATIVE: CASE EVENT DATE: 20130425
